FAERS Safety Report 15475537 (Version 2)
Quarter: 2018Q4

REPORT INFORMATION
  Report Type: Spontaneous
  Country: AT (occurrence: AT)
  Receive Date: 20181008
  Receipt Date: 20181209
  Transmission Date: 20190205
  Serious: Yes (Hospitalization)
  Sender: FDA-Public Use
  Company Number: AT-BIOGEN-2018BI00641846

PATIENT
  Age: 38 Year
  Sex: Female

DRUGS (1)
  1. TYSABRI [Suspect]
     Active Substance: NATALIZUMAB
     Indication: RELAPSING-REMITTING MULTIPLE SCLEROSIS
     Route: 042
     Dates: start: 20141017

REACTIONS (13)
  - Sensory disturbance [Unknown]
  - Infected bite [Unknown]
  - Neutralising antibodies positive [Unknown]
  - Drug intolerance [Unknown]
  - Hypoaesthesia [Unknown]
  - Abdominal pain upper [Unknown]
  - Fatigue [Unknown]
  - Muscular weakness [Unknown]
  - Peripheral arterial occlusive disease [Unknown]
  - Oropharyngeal pain [Unknown]
  - Cough [Unknown]
  - Fine motor skill dysfunction [Unknown]
  - Autonomic nervous system imbalance [Unknown]

NARRATIVE: CASE EVENT DATE: 20150116
